FAERS Safety Report 11593217 (Version 1)
Quarter: 2015Q4

REPORT INFORMATION
  Report Type: Spontaneous
  Country: GB (occurrence: None)
  Receive Date: 20151002
  Receipt Date: 20151002
  Transmission Date: 20160304
  Serious: No
  Sender: FDA-Public Use
  Company Number: None

PATIENT
  Age: 41 Year
  Sex: Male
  Weight: 97.52 kg

DRUGS (1)
  1. CLARYTHROMYCIN [Suspect]
     Active Substance: CLARITHROMYCIN
     Dosage: TAKEN BY MOUTH
     Dates: start: 20151001, end: 20151001

REACTIONS (1)
  - Feeling hot [None]

NARRATIVE: CASE EVENT DATE: 20151001
